FAERS Safety Report 10080320 (Version 1)
Quarter: 2014Q2

REPORT INFORMATION
  Report Type: Spontaneous
  Country: US (occurrence: US)
  Receive Date: 20140415
  Receipt Date: 20140415
  Transmission Date: 20141212
  Serious: Yes (Other)
  Sender: FDA-Public Use
  Company Number: PHEH2014US007155

PATIENT
  Sex: Male
  Weight: 108.8 kg

DRUGS (4)
  1. GILENYA [Suspect]
     Indication: MULTIPLE SCLEROSIS
     Route: 048
  2. AMPYRA [Suspect]
     Indication: GAIT DISTURBANCE
     Dosage: 10 MG, BID
     Route: 048
     Dates: start: 2010
  3. ANTIHYPERTENSIVE DRUGS [Concomitant]
     Dates: start: 2010
  4. LIPITOR [Concomitant]
     Dates: start: 2012

REACTIONS (5)
  - Myocardial infarction [Recovered/Resolved]
  - Blood pressure abnormal [Unknown]
  - Swollen tongue [Recovered/Resolved]
  - Night sweats [Recovered/Resolved]
  - Drooling [Recovered/Resolved]
